FAERS Safety Report 8067506-8 (Version None)
Quarter: 2012Q1

REPORT INFORMATION
  Report Type: 
  Country: None (occurrence: None)
  Receive Date: 20120124
  Receipt Date: 20120119
  Transmission Date: 20120608
  Serious: Yes (Other)
  Sender: FDA-Public Use
  Company Number: DE-ROCHE-1025498

PATIENT
  Sex: Male
  Weight: 110 kg

DRUGS (2)
  1. MIRCERA [Suspect]
     Indication: NEPHROGENIC ANAEMIA
     Route: 042
     Dates: start: 20101110, end: 20101201
  2. MIRCERA [Suspect]
     Route: 042
     Dates: start: 20101201

REACTIONS (2)
  - THROMBOSIS [None]
  - HAEMOGLOBIN DECREASED [None]
